FAERS Safety Report 11653934 (Version 2)
Quarter: 2015Q4

REPORT INFORMATION
  Report Type: Spontaneous
  Country: DE (occurrence: DE)
  Receive Date: 20151022
  Receipt Date: 20151105
  Transmission Date: 20160304
  Serious: Yes (Hospitalization)
  Sender: FDA-Public Use
  Company Number: DE-TEVA-600296GER

PATIENT
  Age: 76 Year
  Sex: Male

DRUGS (5)
  1. CARBAMAZEPIN [Concomitant]
     Active Substance: CARBAMAZEPINE
  2. DOXEPIN 50MG [Suspect]
     Active Substance: DOXEPIN
     Dosage: 100 MILLIGRAM DAILY;
     Dates: start: 201509
  3. AMIODARON [Concomitant]
     Active Substance: AMIODARONE
  4. FENTANYL. [Concomitant]
     Active Substance: FENTANYL
     Route: 062
     Dates: start: 2012
  5. SIMVA ARISTO [Concomitant]

REACTIONS (3)
  - Dizziness [Not Recovered/Not Resolved]
  - Fall [Unknown]
  - Pain [Unknown]

NARRATIVE: CASE EVENT DATE: 201509
